FAERS Safety Report 4939055-4 (Version None)
Quarter: 2006Q1

REPORT INFORMATION
  Report Type: 
  Country: None (occurrence: None)
  Receive Date: 20060306
  Receipt Date: 20060206
  Transmission Date: 20060701
  Serious: Yes (Hospitalization, Other)
  Sender: FDA-Public Use
  Company Number: 2006BH002455

PATIENT
  Age: 21 Year
  Sex: Female
  Weight: 81.1939 kg

DRUGS (1)
  1. HEPARIN SODIUM [Suspect]
     Dosage: IV
     Route: 042

REACTIONS (3)
  - DRUG EXPOSURE DURING PREGNANCY [None]
  - TACHYCARDIA [None]
  - TACHYPNOEA [None]
